FAERS Safety Report 26066044 (Version 1)
Quarter: 2025Q4

REPORT INFORMATION
  Report Type: Spontaneous
  Country: US (occurrence: None)
  Receive Date: 20251119
  Receipt Date: 20251119
  Transmission Date: 20260118
  Serious: Yes (Other)
  Sender: FDA-CTU
  Company Number: None

PATIENT
  Age: 64 Year
  Sex: Female
  Weight: 78.75 kg

DRUGS (5)
  1. ZEPBOUND [Suspect]
     Active Substance: TIRZEPATIDE
     Indication: Hypertension
     Dosage: OTHER FREQUENCY : WEEKLY;?
     Route: 058
     Dates: start: 20251022, end: 20251110
  2. ZEPBOUND [Suspect]
     Active Substance: TIRZEPATIDE
     Indication: Hyperlipidaemia
  3. ZEPBOUND [Suspect]
     Active Substance: TIRZEPATIDE
     Indication: Insomnia
  4. ZEPBOUND [Suspect]
     Active Substance: TIRZEPATIDE
     Indication: Depression
  5. ZEPBOUND [Concomitant]
     Active Substance: TIRZEPATIDE
     Dates: start: 20251022, end: 20251110

REACTIONS (8)
  - Lip swelling [None]
  - Chapped lips [None]
  - Obstructive airways disorder [None]
  - Therapy interrupted [None]
  - Mouth haemorrhage [None]
  - Stomatitis [None]
  - Glossodynia [None]
  - Oral pain [None]

NARRATIVE: CASE EVENT DATE: 20251110
